FAERS Safety Report 7948953-9 (Version None)
Quarter: 2011Q4

REPORT INFORMATION
  Report Type: 
  Country: None (occurrence: None)
  Receive Date: 20111130
  Receipt Date: 20111116
  Transmission Date: 20120403
  Serious: Yes (Other)
  Sender: FDA-Public Use
  Company Number: US-ASTRAZENECA-2011SE29978

PATIENT
  Age: 62 Year
  Sex: Female

DRUGS (1)
  1. CRESTOR [Suspect]
     Route: 048

REACTIONS (6)
  - NEOPLASM MALIGNANT [None]
  - FALL [None]
  - GINGIVAL INFECTION [None]
  - PYREXIA [None]
  - CONTUSION [None]
  - MALAISE [None]
